FAERS Safety Report 5679061-8 (Version None)
Quarter: 2008Q1

REPORT INFORMATION
  Report Type: 
  Country: None (occurrence: None)
  Receive Date: 20080325
  Receipt Date: 20080314
  Transmission Date: 20080703
  Serious: Yes (Death, Hospitalization, Other)
  Sender: FDA-Public Use
  Company Number: JP-WYE-H01805207

PATIENT
  Sex: Male

DRUGS (6)
  1. HYPEN [Suspect]
     Indication: POSTOPERATIVE ANALGESIA
     Route: 048
     Dates: start: 20071122, end: 20071210
  2. OXYBUTYNIN CHLORIDE [Concomitant]
     Indication: POLLAKIURIA
     Dosage: UNSPECIFIED
     Route: 048
     Dates: start: 20070831, end: 20071212
  3. BENIDIPINE [Concomitant]
     Dosage: UNSPECIFIED
     Route: 048
     Dates: start: 20070831, end: 20071212
  4. SIMVASTATIN [Concomitant]
     Indication: HYPERLIPIDAEMIA
     Dosage: UNSPECIFIED
     Route: 048
     Dates: start: 20070831, end: 20071212
  5. OMEPRAZOLE [Suspect]
     Indication: REFLUX OESOPHAGITIS
     Route: 048
     Dates: start: 20071120, end: 20071210
  6. ENALAPRIL MALEATE [Concomitant]
     Indication: HYPERTENSION
     Dosage: UNSPECIFIED
     Route: 048
     Dates: start: 20070831, end: 20071212

REACTIONS (11)
  - ACUTE RESPIRATORY FAILURE [None]
  - BLOOD GLUCOSE INCREASED [None]
  - BLOOD PRESSURE DECREASED [None]
  - DEPRESSED LEVEL OF CONSCIOUSNESS [None]
  - PLATELET COUNT ABNORMAL [None]
  - PNEUMONIA [None]
  - RENAL IMPAIRMENT [None]
  - SEPSIS [None]
  - SKIN BACTERIAL INFECTION [None]
  - STEVENS-JOHNSON SYNDROME [None]
  - WHITE BLOOD CELL COUNT ABNORMAL [None]
